FAERS Safety Report 7234472-4 (Version None)
Quarter: 2011Q1

REPORT INFORMATION
  Report Type: 
  Country: None (occurrence: None)
  Receive Date: 20110119
  Receipt Date: 20101213
  Transmission Date: 20110831
  Serious: Yes (Hospitalization)
  Sender: FDA-Public Use
  Company Number: DE-WATSON-2010-15236

PATIENT
  Age: 76 Year
  Sex: Female

DRUGS (7)
  1. TRIMINEURIN [Suspect]
     Indication: SLEEP DISORDER THERAPY
     Dosage: 100 MG, UNK
     Route: 048
     Dates: start: 20060601, end: 20080908
  2. BISOPROLOL [Concomitant]
     Indication: HYPERTENSION
     Dosage: 2 1/2 MG, UNK
     Route: 048
     Dates: start: 20060601
  3. TIAPRIDEX [Concomitant]
     Indication: TARDIVE DYSKINESIA
     Dosage: UNK
     Route: 048
     Dates: start: 20060601
  4. OMEP [Concomitant]
     Indication: MALLORY-WEISS SYNDROME
     Dosage: 20 MG, UNK
     Route: 048
     Dates: start: 20080810
  5. ASPIRIN [Concomitant]
     Indication: CARDIOVASCULAR EVENT PROPHYLAXIS
     Dosage: 150 MG, UNK
     Route: 048
     Dates: start: 20060601
  6. RAMIPRIL [Suspect]
     Indication: HYPERTENSION
     Dosage: 2 1/2 MG, UNKNOWN
     Route: 048
     Dates: start: 20060601
  7. TORASEMIDE [Suspect]
     Indication: HYPERTENSION
     Dosage: 10 MG, BID
     Route: 048
     Dates: start: 20080901, end: 20080908

REACTIONS (6)
  - SYNCOPE [None]
  - BACK PAIN [None]
  - HYPOKALAEMIA [None]
  - FALL [None]
  - HYPONATRAEMIA [None]
  - DEHYDRATION [None]
